FAERS Safety Report 5697038-3 (Version None)
Quarter: 2008Q2

REPORT INFORMATION
  Report Type: 
  Country: None (occurrence: None)
  Receive Date: 20080408
  Receipt Date: 20070326
  Transmission Date: 20081010
  Serious: No
  Sender: FDA-Public Use
  Company Number: US-BAYER-US-2007-010669

PATIENT
  Age: 20 Year
  Sex: Female
  Weight: 50 kg

DRUGS (1)
  1. YASMIN [Suspect]
     Indication: ORAL CONTRACEPTION
     Dates: start: 20060901

REACTIONS (6)
  - AFFECTIVE DISORDER [None]
  - ANXIETY [None]
  - DIZZINESS [None]
  - INSOMNIA [None]
  - PANIC ATTACK [None]
  - WEIGHT DECREASED [None]
